FAERS Safety Report 9224730 (Version 1)
Quarter: 2013Q2

REPORT INFORMATION
  Report Type: Spontaneous
  Country: US (occurrence: None)
  Receive Date: 20130409
  Receipt Date: 20130409
  Transmission Date: 20140414
  Serious: Yes (Other)
  Sender: FDA-Public Use
  Company Number: ALK-2013-001313

PATIENT
  Age: 23 Year
  Sex: 0
  Weight: 65.8 kg

DRUGS (2)
  1. VIVITROL (VIVITROL_NDA) INJECTION, 380MG [Suspect]
     Indication: ALCOHOLISM
     Route: 030
     Dates: start: 20130122
  2. DOXEPIN (DOXEPIN) (DOXEPIN) [Concomitant]

REACTIONS (8)
  - Injection site mass [None]
  - Injection site nodule [None]
  - Injection site erythema [None]
  - Injection site pruritus [None]
  - Injection site pain [None]
  - Injection site warmth [None]
  - Injection site induration [None]
  - Injection site discomfort [None]
